FAERS Safety Report 5816903-7 (Version None)
Quarter: 2008Q3

REPORT INFORMATION
  Report Type: 
  Country: None (occurrence: None)
  Receive Date: 20080722
  Receipt Date: 20080717
  Transmission Date: 20090109
  Serious: Yes (Life-Threatening, Disabling)
  Sender: FDA-Public Use
  Company Number: JP-BRISTOL-MYERS SQUIBB COMPANY-14234322

PATIENT
  Age: 65 Year
  Sex: Female

DRUGS (2)
  1. PARAPLATIN [Suspect]
     Indication: OVARIAN CANCER
     Dosage: THERAPY INITIATED ON 07MAY03.
     Route: 042
     Dates: start: 20030827, end: 20030827
  2. TAXOL [Suspect]
     Indication: OVARIAN CANCER
     Dosage: THERAPY DATES: 07MAY03-27AUG03 (RECEIVED 245MG).
     Route: 042
     Dates: start: 20040101, end: 20040101

REACTIONS (1)
  - LARGE INTESTINE PERFORATION [None]
